FAERS Safety Report 12661758 (Version 2)
Quarter: 2016Q3

REPORT INFORMATION
  Report Type: Report from Study
  Country: US (occurrence: US)
  Receive Date: 20160817
  Receipt Date: 20160906
  Transmission Date: 20161109
  Serious: Yes (Hospitalization, Other)
  Sender: FDA-Public Use
  Company Number: US-BAYER-2016-040072

PATIENT
  Age: 78 Year
  Sex: Female
  Weight: 78.91 kg

DRUGS (11)
  1. ADEMPAS [Suspect]
     Active Substance: RIOCIGUAT
     Indication: PULMONARY HYPERTENSION
     Dosage: 2.5 MG, TID
  2. ADEMPAS [Suspect]
     Active Substance: RIOCIGUAT
     Indication: PULMONARY HYPERTENSION
     Dosage: 2.5 MG, TID
  3. ADEMPAS [Suspect]
     Active Substance: RIOCIGUAT
     Indication: PULMONARY HYPERTENSION
     Dosage: 2 MG, TID
  4. ADEMPAS [Suspect]
     Active Substance: RIOCIGUAT
     Indication: PULMONARY HYPERTENSION
     Dosage: 1 MG, TID
  5. ADEMPAS [Suspect]
     Active Substance: RIOCIGUAT
     Indication: PULMONARY HYPERTENSION
     Dosage: UNK
     Dates: start: 20160217
  6. ADEMPAS [Suspect]
     Active Substance: RIOCIGUAT
     Indication: PULMONARY HYPERTENSION
     Dosage: 0.5 MG, TID
     Dates: end: 20160305
  7. COUMADIN [Concomitant]
     Active Substance: WARFARIN SODIUM
  8. ADEMPAS [Suspect]
     Active Substance: RIOCIGUAT
     Indication: PULMONARY HYPERTENSION
     Dosage: 1.5 MG, TID
  9. ADEMPAS [Suspect]
     Active Substance: RIOCIGUAT
     Indication: PULMONARY HYPERTENSION
     Dosage: UNK
     Dates: start: 20160323
  10. ADEMPAS [Suspect]
     Active Substance: RIOCIGUAT
     Indication: PULMONARY HYPERTENSION
     Dosage: 0.5 MG, TID
     Dates: end: 20160305
  11. WARFARIN [Concomitant]
     Active Substance: WARFARIN
     Dosage: UNK

REACTIONS (19)
  - Nausea [Unknown]
  - Hypotension [Unknown]
  - Constipation [Not Recovered/Not Resolved]
  - Asthenia [None]
  - Blood pressure decreased [None]
  - Bladder operation [Unknown]
  - Breath sounds abnormal [Not Recovered/Not Resolved]
  - Ocular hyperaemia [None]
  - Dialysis [None]
  - Vomiting [Recovered/Resolved]
  - Blood urine present [None]
  - Dizziness [None]
  - Cough [None]
  - Arteriovenous fistula operation [Unknown]
  - Bladder cancer [Unknown]
  - Oedema peripheral [None]
  - Hospitalisation [None]
  - Bladder mass [Unknown]
  - Headache [Unknown]

NARRATIVE: CASE EVENT DATE: 20160504
